FAERS Safety Report 14051175 (Version 1)
Quarter: 2017Q4

REPORT INFORMATION
  Report Type: Spontaneous
  Country: US (occurrence: US)
  Receive Date: 20171005
  Receipt Date: 20171005
  Transmission Date: 20180321
  Serious: Yes (Other)
  Sender: FDA-Public Use
  Company Number: US-FRESENIUS KABI-FK201708280

PATIENT
  Age: 69 Year
  Sex: Female

DRUGS (8)
  1. BLEOMYCIN [Suspect]
     Active Substance: BLEOMYCIN SULFATE
     Indication: HODGKIN^S DISEASE
     Route: 065
  2. DOXORUBICIN (MANUFACTURER UNKNOWN) [Suspect]
     Active Substance: DOXORUBICIN
     Indication: HODGKIN^S DISEASE
     Route: 065
  3. VINBLASTINE (MANUFACTURER UNKNOWN) [Suspect]
     Active Substance: VINBLASTINE
     Indication: HODGKIN^S DISEASE
     Route: 065
  4. BLEOMYCIN [Suspect]
     Active Substance: BLEOMYCIN SULFATE
     Indication: EPSTEIN-BARR VIRUS INFECTION
  5. DACARBAZINE (MANUFACTURER UNKNOWN) [Suspect]
     Active Substance: DACARBAZINE
     Indication: HODGKIN^S DISEASE
     Route: 065
  6. DACARBAZINE (MANUFACTURER UNKNOWN) [Suspect]
     Active Substance: DACARBAZINE
     Indication: EPSTEIN-BARR VIRUS INFECTION
  7. DOXORUBICIN (MANUFACTURER UNKNOWN) [Suspect]
     Active Substance: DOXORUBICIN
     Indication: EPSTEIN-BARR VIRUS INFECTION
  8. VINBLASTINE (MANUFACTURER UNKNOWN) [Suspect]
     Active Substance: VINBLASTINE
     Indication: EPSTEIN-BARR VIRUS INFECTION

REACTIONS (1)
  - Cytopenia [Recovered/Resolved]
